FAERS Safety Report 14948126 (Version 3)
Quarter: 2019Q2

REPORT INFORMATION
  Report Type: Spontaneous
  Country: FR (occurrence: FR)
  Receive Date: 20180529
  Receipt Date: 20190418
  Transmission Date: 20190711
  Serious: Yes (Hospitalization)
  Sender: FDA-Public Use
  Company Number: FR-PFIZER INC-2018210606

PATIENT
  Age: 23 Year
  Sex: Male

DRUGS (2)
  1. ZYVOXID [Suspect]
     Active Substance: LINEZOLID
     Indication: ATYPICAL MYCOBACTERIAL INFECTION
     Dosage: 1200 MG, 1X/DAY
     Route: 048
     Dates: start: 20180305, end: 20180305
  2. CELLCEPT [Suspect]
     Active Substance: MYCOPHENOLATE MOFETIL\MYCOPHENOLATE MOFETIL HYDROCHLORIDE
     Indication: TRANSPLANT
     Dosage: 1000 MG, 1X/DAY
     Route: 048
     Dates: start: 20180305, end: 20180413

REACTIONS (2)
  - Aplasia pure red cell [Unknown]
  - Anaemia [Not Recovered/Not Resolved]

NARRATIVE: CASE EVENT DATE: 201803
